FAERS Safety Report 5220044-X (Version None)
Quarter: 2007Q1

REPORT INFORMATION
  Report Type: 
  Country: None (occurrence: None)
  Receive Date: 20070125
  Receipt Date: 20070119
  Transmission Date: 20070707
  Serious: Yes (Hospitalization)
  Sender: FDA-Public Use
  Company Number: FR-MERCK-0612FRA00059

PATIENT
  Age: 75 Year
  Sex: Male

DRUGS (5)
  1. FOSAMAX [Suspect]
     Indication: OSTEOPOROSIS
     Route: 048
     Dates: start: 20020615, end: 20050615
  2. FOSAMAX [Suspect]
     Route: 048
     Dates: start: 20050616, end: 20061015
  3. METHOTREXATE [Concomitant]
     Indication: RHEUMATOID ARTHRITIS
     Route: 048
  4. PREDNISONE [Concomitant]
     Indication: RHEUMATOID ARTHRITIS
     Route: 048
  5. PAMIDRONATE DISODIUM [Concomitant]
     Indication: LOWER LIMB FRACTURE
     Route: 042
     Dates: start: 20040101, end: 20040101

REACTIONS (2)
  - OSTEOLYSIS [None]
  - PAIN IN JAW [None]
